FAERS Safety Report 24763817 (Version 1)
Quarter: 2024Q4

REPORT INFORMATION
  Report Type: Spontaneous
  Country: US (occurrence: US)
  Receive Date: 20241223
  Receipt Date: 20241223
  Transmission Date: 20250115
  Serious: No
  Sender: STALLERGENES
  Company Number: US-AIMMUNE THERAPEUTICS, INC.-2024AIMT00437

PATIENT
  Age: 9 Year
  Sex: Female

DRUGS (5)
  1. PALFORZIA [Suspect]
     Active Substance: PEANUT
     Indication: Food allergy
     Dosage: IDE(0.5MG-6MG), ONCE
     Dates: start: 20231205, end: 20231205
  2. PALFORZIA [Suspect]
     Active Substance: PEANUT
     Dosage: UNKNOWN DOSE, 1X/DAY
  3. PALFORZIA [Suspect]
     Active Substance: PEANUT
     Dosage: UNKNOWN DOSE, ONCE, LAST DOSE PRIOR THE EVENTS
  4. LORATADINE [Concomitant]
     Active Substance: LORATADINE
     Indication: Product used for unknown indication
     Dosage: 10 MG
  5. EPIPEN [Concomitant]
     Active Substance: EPINEPHRINE
     Indication: Product used for unknown indication

REACTIONS (2)
  - Abdominal pain upper [Not Recovered/Not Resolved]
  - Abdominal discomfort [Not Recovered/Not Resolved]

NARRATIVE: CASE EVENT DATE: 20240117
